FAERS Safety Report 4564003-9 (Version None)
Quarter: 2005Q1

REPORT INFORMATION
  Report Type: 
  Country: None (occurrence: None)
  Receive Date: 20050124
  Receipt Date: 20050111
  Transmission Date: 20050727
  Serious: Yes (Hospitalization)
  Sender: FDA-Public Use
  Company Number: PHNU2005DE00550

PATIENT
  Age: 13 Year
  Sex: Male

DRUGS (1)
  1. LAMISIL [Suspect]
     Indication: FUNGAL INFECTION
     Dosage: TOPICAL
     Dates: start: 20041201, end: 20041220

REACTIONS (3)
  - BORRELIA INFECTION [None]
  - FACIAL PARESIS [None]
  - VIRAL INFECTION [None]
